FAERS Safety Report 25606708 (Version 3)
Quarter: 2025Q3

REPORT INFORMATION
  Report Type: Spontaneous
  Country: CA (occurrence: CA)
  Receive Date: 20250725
  Receipt Date: 20250922
  Transmission Date: 20251021
  Serious: Yes (Other)
  Sender: PFIZER
  Company Number: CA-PFIZER INC-202500149532

PATIENT
  Age: 60 Year
  Sex: Male
  Weight: 83 kg

DRUGS (7)
  1. IXIFI [Suspect]
     Active Substance: INFLIXIMAB-QBTX
     Indication: Crohn^s disease
     Route: 042
     Dates: start: 20250623
  2. IXIFI [Suspect]
     Active Substance: INFLIXIMAB-QBTX
     Route: 042
     Dates: start: 20250722
  3. IXIFI [Suspect]
     Active Substance: INFLIXIMAB-QBTX
     Route: 042
     Dates: start: 20250916
  4. FOLIC ACID [Concomitant]
     Active Substance: FOLIC ACID
     Dates: start: 202406
  5. FRAGMIN [Concomitant]
     Active Substance: DALTEPARIN SODIUM
     Dates: start: 20240601
  6. METHOTREXATE [Concomitant]
     Active Substance: METHOTREXATE
     Dosage: 5 DF, WEEKLY, 5 TABS SINGLE DOSE (EACH 2.5MG) WEEKLY
     Route: 048
     Dates: start: 202405
  7. PREDNISONE [Concomitant]
     Active Substance: PREDNISONE
     Dates: start: 20240601

REACTIONS (1)
  - Pyoderma gangrenosum [Recovered/Resolved]

NARRATIVE: CASE EVENT DATE: 20250722
